FAERS Safety Report 15341754 (Version 1)
Quarter: 2018Q3

REPORT INFORMATION
  Report Type: Spontaneous
  Country: FR (occurrence: FR)
  Receive Date: 20180901
  Receipt Date: 20180901
  Transmission Date: 20181010
  Serious: Yes (Other)
  Sender: FDA-Public Use
  Company Number: FR-AXELLIA-001930

PATIENT
  Age: 36 Year
  Sex: Female

DRUGS (5)
  1. BUDESONIDE. [Interacting]
     Active Substance: BUDESONIDE
     Indication: ASTHMA
     Dosage: (ADDITIONAL DOSES IN CASE OF ACUTE CRISIS)
  2. FLUTICASONE. [Interacting]
     Active Substance: FLUTICASONE
     Indication: ASTHMA
  3. MONTELUKAST [Concomitant]
     Active Substance: MONTELUKAST SODIUM
     Indication: ASTHMA
  4. IMMUNOGLOBULIN HUMAN NORMAL [Concomitant]
     Active Substance: HUMAN IMMUNOGLOBULIN G
     Indication: IMMUNODEFICIENCY CONGENITAL
     Route: 042
  5. VORICONAZOLE. [Suspect]
     Active Substance: VORICONAZOLE
     Indication: BRONCHOPULMONARY ASPERGILLOSIS
     Dates: start: 201412, end: 201508

REACTIONS (2)
  - Adrenal suppression [Unknown]
  - Drug interaction [Unknown]
